FAERS Safety Report 12510348 (Version 1)
Quarter: 2016Q2

REPORT INFORMATION
  Report Type: Spontaneous
  Country: US (occurrence: US)
  Receive Date: 20160629
  Receipt Date: 20160629
  Transmission Date: 20160815
  Serious: No
  Sender: FDA-Public Use
  Company Number: US-RECKITT BENCKISER HEALTHCARE INT LIMITED-RB-80162-2016

PATIENT
  Age: 51 Year
  Sex: Female

DRUGS (9)
  1. MUCINEX [Suspect]
     Active Substance: GUAIFENESIN
     Indication: PULMONARY CONGESTION
  2. MUCINEX [Suspect]
     Active Substance: GUAIFENESIN
     Indication: PULMONARY CONGESTION
  3. MUCINEX [Suspect]
     Active Substance: GUAIFENESIN
     Indication: PULMONARY CONGESTION
  4. MUCINEX [Suspect]
     Active Substance: GUAIFENESIN
     Indication: COUGH
  5. MUCINEX [Suspect]
     Active Substance: GUAIFENESIN
     Indication: SINUS CONGESTION
     Dosage: UNK
     Route: 065
     Dates: start: 20151203
  6. MUCINEX [Suspect]
     Active Substance: GUAIFENESIN
     Indication: COUGH
  7. MUCINEX [Suspect]
     Active Substance: GUAIFENESIN
     Indication: SINUS CONGESTION
     Dosage: UNK
     Route: 065
     Dates: start: 201511, end: 2015
  8. MUCINEX [Suspect]
     Active Substance: GUAIFENESIN
     Indication: SINUS CONGESTION
     Dosage: UNK
     Route: 065
  9. MUCINEX [Suspect]
     Active Substance: GUAIFENESIN
     Indication: COUGH

REACTIONS (1)
  - Drug ineffective [Not Recovered/Not Resolved]
